FAERS Safety Report 4477553-0 (Version None)
Quarter: 2004Q4

REPORT INFORMATION
  Report Type: 
  Country: None (occurrence: None)
  Receive Date: 20041013
  Receipt Date: 20040929
  Transmission Date: 20050328
  Serious: No
  Sender: FDA-Public Use
  Company Number: 2004SE05095

PATIENT
  Age: 85 Year
  Sex: Female

DRUGS (3)
  1. OMEPRAL [Suspect]
     Indication: GASTRIC ULCER HAEMORRHAGE
     Dosage: 20 MG BID IV
     Route: 042
     Dates: start: 20040826, end: 20040830
  2. OMEPRAZOLE [Suspect]
     Indication: GASTRIC ULCER
     Dosage: 20 MG QD PO
     Route: 048
     Dates: start: 20040831, end: 20040902
  3. ISOTONIC SODIUM CHLORIDE SOLUTION [Concomitant]

REACTIONS (6)
  - ANOREXIA [None]
  - MALAISE [None]
  - NEUTROPHIL COUNT DECREASED [None]
  - PYREXIA [None]
  - THROMBOCYTOPENIA [None]
  - WHITE BLOOD CELL COUNT DECREASED [None]
